FAERS Safety Report 14587463 (Version 1)
Quarter: 2018Q1

REPORT INFORMATION
  Report Type: Spontaneous
  Country: CA (occurrence: CA)
  Receive Date: 20180301
  Receipt Date: 20180301
  Transmission Date: 20180509
  Serious: No
  Sender: FDA-Public Use
  Company Number: CA-DUSA PHARMACEUTICALS, INC.-2042819

PATIENT
  Age: 58 Year
  Sex: Female

DRUGS (1)
  1. LEVULAN KERASTICK [Suspect]
     Active Substance: AMINOLEVULINIC ACID HYDROCHLORIDE
     Indication: ACTINIC KERATOSIS
     Route: 061
     Dates: start: 20180128, end: 20180128

REACTIONS (5)
  - Application site burn [Recovered/Resolved]
  - Drug ineffective [Unknown]
  - Inflammation [Recovered/Resolved]
  - Condition aggravated [Unknown]
  - Wrong technique in product usage process [Unknown]

NARRATIVE: CASE EVENT DATE: 20180129
